FAERS Safety Report 8583677-9 (Version None)
Quarter: 2012Q3

REPORT INFORMATION
  Report Type: 
  Country: None (occurrence: None)
  Receive Date: 20120809
  Receipt Date: 20120717
  Transmission Date: 20120928
  Serious: Yes (Life-Threatening, Hospitalization)
  Sender: FDA-Public Use
  Company Number: JP-009507513-2012SP015613

PATIENT
  Sex: Female
  Weight: 33 kg

DRUGS (38)
  1. SULFAMETHOXAZOLE AND TRIMETHOPRIM [Concomitant]
     Indication: ANTIFUNGAL PROPHYLAXIS
     Dosage: DAILY DOSAGE UNKNOWN
     Route: 048
     Dates: start: 20110120, end: 20110328
  2. NEUQUINON [Concomitant]
     Dosage: DAILY DOSAGE UNKNOWN
     Route: 048
     Dates: start: 20110111, end: 20110330
  3. NEUQUINON [Concomitant]
     Route: 048
  4. INDOMETHACIN [Concomitant]
     Indication: PROPHYLAXIS
     Dosage: DAILY DOSAGE UNKNOWN
     Route: 054
     Dates: start: 20110113, end: 20110216
  5. TEMODAL [Suspect]
     Route: 041
     Dates: start: 20110622, end: 20110626
  6. CEFAZOLIN SODIUM [Concomitant]
     Route: 048
  7. DIOVAN [Concomitant]
     Indication: PRODUCT USED FOR UNKNOWN INDICATION
     Route: 048
     Dates: end: 20110330
  8. LANSOPRAZOLE [Concomitant]
     Indication: PRODUCT USED FOR UNKNOWN INDICATION
     Route: 048
     Dates: end: 20110330
  9. MAGNESIUM OXIDE [Concomitant]
     Indication: PRODUCT USED FOR UNKNOWN INDICATION
     Route: 048
     Dates: start: 20110129, end: 20110216
  10. GRANISETRON [Concomitant]
     Indication: PROPHYLAXIS
     Route: 041
     Dates: start: 20110119, end: 20110123
  11. TEMODAL [Suspect]
     Route: 041
     Dates: start: 20110119, end: 20110301
  12. TEMOZOLOMIDE [Suspect]
     Dosage: 150 MG/M2, QD
     Route: 041
     Dates: start: 20110317, end: 20110321
  13. DIOVAN [Concomitant]
     Dosage: DAILY DOSAGE UNKNOWN
     Route: 048
     Dates: start: 20110111, end: 20110330
  14. LAXOBERON [Concomitant]
     Indication: PRODUCT USED FOR UNKNOWN INDICATION
     Dosage: DAILY DOSAGE UNKNOWN
     Route: 048
     Dates: start: 20110113, end: 20110216
  15. SIMVASTATIN [Concomitant]
     Dosage: DAILY DOSAGE UNKNOWN
     Route: 048
     Dates: start: 20110111, end: 20110330
  16. SULFAMETHOXAZOLE AND TRIMETHOPRIM [Concomitant]
  17. NEUQUINON [Concomitant]
     Indication: PRODUCT USED FOR UNKNOWN INDICATION
     Route: 048
     Dates: end: 20110330
  18. TEGRETOL [Concomitant]
     Dosage: DAILY DOSAGE UNKNOWN
     Route: 048
     Dates: start: 20110111, end: 20110315
  19. PRIMPERAN TAB [Concomitant]
     Indication: PRODUCT USED FOR UNKNOWN INDICATION
     Route: 048
     Dates: start: 20110124, end: 20110209
  20. LORAZEPAM [Concomitant]
     Indication: PRODUCT USED FOR UNKNOWN INDICATION
     Route: 048
     Dates: end: 20110330
  21. PREDNISOLONE [Concomitant]
     Indication: PRODUCT USED FOR UNKNOWN INDICATION
     Route: 048
     Dates: end: 20110315
  22. TEMODAL [Suspect]
     Route: 041
  23. TEMOZOLOMIDE [Suspect]
     Dosage: 200 MG/M2, QD
     Route: 041
     Dates: start: 20110414, end: 20110723
  24. LANSOPRAZOLE [Concomitant]
     Dosage: DAILY DOSAGE UNKNOWN
     Route: 048
     Dates: start: 20110111, end: 20110330
  25. ZOLPIDEM [Concomitant]
     Indication: PRODUCT USED FOR UNKNOWN INDICATION
     Dosage: DAILY DOSAGE UNKNOWN
     Route: 048
     Dates: start: 20110113, end: 20110216
  26. TEMODAL [Suspect]
     Route: 041
     Dates: start: 20110414, end: 20110418
  27. TEMODAL [Suspect]
     Route: 041
     Dates: start: 20110719, end: 20110723
  28. SIMVASTATIN [Concomitant]
     Indication: PRODUCT USED FOR UNKNOWN INDICATION
     Route: 048
     Dates: end: 20110330
  29. TEGRETOL [Concomitant]
     Indication: PRODUCT USED FOR UNKNOWN INDICATION
     Route: 048
     Dates: end: 20110315
  30. TEMODAL [Suspect]
     Route: 041
     Dates: start: 20110317, end: 20110321
  31. TEMODAL [Suspect]
     Route: 041
     Dates: start: 20110516, end: 20110520
  32. WARFARIN SODIUM [Concomitant]
     Dosage: DAILY DOSAGE UNKNOWN
     Route: 048
     Dates: start: 20110117, end: 20110330
  33. TEMOZOLOMIDE [Suspect]
     Indication: ANAPLASTIC ASTROCYTOMA
     Dosage: 75 MG/M2, QD
     Route: 041
     Dates: start: 20110119, end: 20110301
  34. LORAZEPAM [Concomitant]
     Dosage: DAILY DOSAGE UNKNOWN
     Route: 048
     Dates: start: 20110111, end: 20110330
  35. URSO 250 [Concomitant]
     Indication: PRODUCT USED FOR UNKNOWN INDICATION
     Dosage: DAILY DOSAGE UNKNOWN
     Route: 048
     Dates: start: 20110116, end: 20110315
  36. WARFARIN POTASSIUM [Concomitant]
     Indication: PRODUCT USED FOR UNKNOWN INDICATION
     Route: 048
     Dates: start: 20110117, end: 20110330
  37. PREDNISOLONE [Suspect]
     Dosage: DAILY DOSAGE UNKNOWN
     Route: 048
     Dates: start: 20110111, end: 20110315
  38. WARFARIN SODIUM [Concomitant]
     Route: 048

REACTIONS (7)
  - NEUTROPHIL COUNT INCREASED [None]
  - DECREASED APPETITE [None]
  - NAUSEA [None]
  - DIARRHOEA [None]
  - ASTHENIA [None]
  - LYMPHOCYTE COUNT DECREASED [None]
  - SEPSIS [None]
